FAERS Safety Report 6558710-6 (Version None)
Quarter: 2010Q1

REPORT INFORMATION
  Report Type: 
  Country: None (occurrence: None)
  Receive Date: 20100129
  Receipt Date: 20100119
  Transmission Date: 20100710
  Serious: Yes (Life-Threatening)
  Sender: FDA-Public Use
  Company Number: JP-PFIZER INC-2009313363

PATIENT
  Age: 60 Year
  Sex: Male
  Weight: 52.7 kg

DRUGS (9)
  1. SUNITINIB MALATE [Suspect]
     Indication: RENAL CELL CARCINOMA
     Dosage: 50 MG, 1X/DAY
     Route: 048
     Dates: start: 20090730, end: 20090820
  2. OXYCODONE HYDROCHLORIDE HYDRATE [Concomitant]
     Route: 048
  3. NOVAMIN [Concomitant]
     Route: 048
  4. MAGNESIUM OXIDE [Concomitant]
     Route: 048
  5. SENNOSIDE A+B [Concomitant]
     Route: 048
  6. LOXONIN [Concomitant]
     Route: 048
     Dates: start: 20090810
  7. LANDSEN [Concomitant]
     Route: 048
     Dates: start: 20090810, end: 20090812
  8. BETAMETHASONE VALERATE [Concomitant]
     Route: 048
     Dates: start: 20090812
  9. AMOXAN [Concomitant]
     Route: 048
     Dates: start: 20090813

REACTIONS (1)
  - PNEUMONIA ASPIRATION [None]
